FAERS Safety Report 4703503-5 (Version None)
Quarter: 2005Q2

REPORT INFORMATION
  Report Type: 
  Country: None (occurrence: None)
  Receive Date: 20050208
  Receipt Date: 20050208
  Transmission Date: 20051028
  Serious: Yes (Hospitalization)
  Sender: FDA-Public Use
  Company Number: None

PATIENT
  Age: 65 Year
  Sex: Female

DRUGS (9)
  1. AMIODARONE HCL [Suspect]
     Indication: CARDIAC SARCOIDOSIS
     Dosage: 200 MG PO Q DAY
     Route: 048
  2. MEXILETINE HCL [Suspect]
     Indication: CARDIAC SARCOIDOSIS
     Dosage: 200 MG PO BID
     Route: 048
  3. ASPIRIN [Concomitant]
  4. NORVASC [Concomitant]
  5. THYROID TAB [Concomitant]
  6. ATENOLOL [Concomitant]
  7. . [Concomitant]
  8. BISACODYL [Concomitant]
  9. DIAZEPAM [Concomitant]

REACTIONS (4)
  - CHEST PAIN [None]
  - DRUG EFFECT DECREASED [None]
  - PHARMACEUTICAL PRODUCT COMPLAINT [None]
  - THERAPEUTIC RESPONSE UNEXPECTED WITH DRUG SUBSTITUTION [None]
